FAERS Safety Report 9160654 (Version 1)
Quarter: 2013Q1

REPORT INFORMATION
  Report Type: Spontaneous
  Country: US (occurrence: None)
  Receive Date: 20130215
  Receipt Date: 20130215
  Transmission Date: 20140127
  Serious: Yes (Hospitalization)
  Sender: FDA-Public Use
  Company Number: 2013AP002261

PATIENT
  Age: 49 Year
  Sex: Male
  Weight: 62.7 kg

DRUGS (1)
  1. LEVETIRACETAM [Suspect]
     Route: 048

REACTIONS (4)
  - Intentional overdose [None]
  - Suicide attempt [None]
  - Blood urea decreased [None]
  - PCO2 decreased [None]
